FAERS Safety Report 16549835 (Version 1)
Quarter: 2019Q3

REPORT INFORMATION
  Report Type: Spontaneous
  Country: US (occurrence: US)
  Receive Date: 20190710
  Receipt Date: 20190710
  Transmission Date: 20191004
  Serious: No
  Sender: FDA-Public Use
  Company Number: US-TEVA-2019-US-1070624

PATIENT
  Sex: Female

DRUGS (2)
  1. GABITRIL [Suspect]
     Active Substance: TIAGABINE HYDROCHLORIDE
     Indication: BIPOLAR DISORDER
  2. DOXEPIN [Suspect]
     Active Substance: DOXEPIN
     Route: 065

REACTIONS (5)
  - Pollakiuria [Unknown]
  - Nausea [Unknown]
  - Feeling abnormal [Unknown]
  - Temperature intolerance [Unknown]
  - Abdominal pain upper [Unknown]
